FAERS Safety Report 17311969 (Version 1)
Quarter: 2020Q1

REPORT INFORMATION
  Report Type: Spontaneous
  Country: US (occurrence: US)
  Receive Date: 20200123
  Receipt Date: 20200123
  Transmission Date: 20200409
  Serious: No
  Sender: FDA-Public Use
  Company Number: US-NOVOPROD-700085

PATIENT
  Age: 77 Year
  Sex: Male

DRUGS (2)
  1. OZEMPIC [Suspect]
     Active Substance: SEMAGLUTIDE
     Dosage: 0.25 MG, QW
     Route: 058
     Dates: start: 201911
  2. OZEMPIC [Suspect]
     Active Substance: SEMAGLUTIDE
     Indication: PRODUCT USED FOR UNKNOWN INDICATION
     Dosage: 1 MG, QW
     Route: 058
     Dates: start: 20191106, end: 201911

REACTIONS (5)
  - Off label use [Recovered/Resolved]
  - Product use issue [Not Recovered/Not Resolved]
  - Diarrhoea [Recovered/Resolved]
  - Weight decreased [Recovered/Resolved]
  - Intentional product misuse [Not Recovered/Not Resolved]

NARRATIVE: CASE EVENT DATE: 201911
